FAERS Safety Report 10416266 (Version 1)
Quarter: 2014Q2

REPORT INFORMATION
  Report Type: Spontaneous
  Country: US (occurrence: None)
  Receive Date: 20140604
  Receipt Date: 20140604
  Transmission Date: 20141212
  Serious: Yes (Hospitalization, Other)
  Sender: FDA-Public Use
  Company Number: 163-POMAL-14033954

PATIENT
  Age: 78 Year
  Sex: Male

DRUGS (1)
  1. POMALYST (POMALIDOMIDE) (CAPSULE) [Suspect]
     Indication: PLASMA CELL MYELOMA
     Dosage: 14 IN 21 D
     Dates: start: 20140310, end: 20140314

REACTIONS (2)
  - Haemoglobin decreased [None]
  - Full blood count decreased [None]
